FAERS Safety Report 8389808-8 (Version None)
Quarter: 2012Q2

REPORT INFORMATION
  Report Type: 
  Country: None (occurrence: None)
  Receive Date: 20120529
  Receipt Date: 20120524
  Transmission Date: 20120825
  Serious: Yes (Other)
  Sender: FDA-Public Use
  Company Number: PHHY2012PT044819

PATIENT
  Sex: Male

DRUGS (1)
  1. ZOMETA [Suspect]
     Indication: BONE DISORDER
     Dosage: 4 MG, EVERY 28 DAYS
     Route: 042
     Dates: start: 20110104, end: 20120515

REACTIONS (3)
  - OSTEONECROSIS OF JAW [None]
  - ULCER [None]
  - EXPOSED BONE IN JAW [None]
